FAERS Safety Report 6538883-1 (Version None)
Quarter: 2010Q1

REPORT INFORMATION
  Report Type: 
  Country: None (occurrence: None)
  Receive Date: 20100115
  Receipt Date: 20100106
  Transmission Date: 20100710
  Serious: Yes (Hospitalization)
  Sender: FDA-Public Use
  Company Number: US-NOVOPROD-302827

PATIENT
  Sex: Female
  Weight: 71.655 kg

DRUGS (21)
  1. NORDITROPIN NORDIFLEX [Suspect]
     Indication: GROWTH HORMONE DEFICIENCY
     Dosage: 0.25 MG, QD
     Route: 058
  2. AZATHIOPRINE [Concomitant]
     Indication: DRUG USE FOR UNKNOWN INDICATION
     Dosage: 150 MG, QD
  3. CYCLOBENZAPRINE [Concomitant]
     Indication: DRUG USE FOR UNKNOWN INDICATION
     Dosage: 10 MG, BID
  4. EVOXAC [Concomitant]
     Indication: DRUG USE FOR UNKNOWN INDICATION
     Dosage: 30 MG, BID
  5. FOLIC ACID [Concomitant]
     Indication: DRUG USE FOR UNKNOWN INDICATION
     Dosage: 1 MG, BID
  6. GLYCOLAX [Concomitant]
     Indication: DRUG USE FOR UNKNOWN INDICATION
     Dosage: UNK, BID
  7. METANX [Concomitant]
     Indication: DRUG USE FOR UNKNOWN INDICATION
     Dosage: UNK, QD
  8. METFORMIN HCL [Concomitant]
     Indication: DRUG USE FOR UNKNOWN INDICATION
     Dosage: 500 MG, BID
  9. PANTOPRAZOL [Concomitant]
     Indication: DRUG USE FOR UNKNOWN INDICATION
     Dosage: 40 MG, QD
  10. SPIRONOLACTONE [Concomitant]
  11. SYNTHROID [Concomitant]
     Indication: DRUG USE FOR UNKNOWN INDICATION
     Dosage: 100 UG, QD
  12. ULTRAM [Concomitant]
     Indication: DRUG USE FOR UNKNOWN INDICATION
     Dosage: 50 MG, BID
  13. VITAMIN A [Concomitant]
     Indication: DRUG USE FOR UNKNOWN INDICATION
     Dosage: 1.25 MG, QW
  14. ADVIL                              /00044201/ [Concomitant]
     Indication: DRUG USE FOR UNKNOWN INDICATION
     Dosage: 400 TO 600 MG, QD
  15. ASPIRIN [Concomitant]
     Indication: DRUG USE FOR UNKNOWN INDICATION
     Dosage: 325 MG, BID
  16. CALCIUM 600+VIT D [Concomitant]
     Dosage: 600 MG W/ VITAIMIN D 200 MG QD
  17. MAGNESIUM [Concomitant]
     Indication: DRUG USE FOR UNKNOWN INDICATION
     Dosage: 500 MG, QD
  18. LIDODERM [Concomitant]
     Indication: DRUG USE FOR UNKNOWN INDICATION
     Dosage: 5%, 2 PATCHES, QD PRN
  19. MIGQUIN [Concomitant]
     Indication: DRUG USE FOR UNKNOWN INDICATION
     Dosage: UNK, PRN
  20. PROMETHAZINE [Concomitant]
     Indication: DRUG USE FOR UNKNOWN INDICATION
     Dosage: 12.5 MG, PRN
  21. VOLTAREN                           /01485101/ [Concomitant]
     Indication: DRUG USE FOR UNKNOWN INDICATION
     Dosage: 1 %, PRN

REACTIONS (2)
  - CONDITION AGGRAVATED [None]
  - IMPAIRED GASTRIC EMPTYING [None]
